FAERS Safety Report 12125542 (Version 1)
Quarter: 2016Q1

REPORT INFORMATION
  Report Type: Spontaneous
  Country: US (occurrence: None)
  Receive Date: 20160226
  Receipt Date: 20160226
  Transmission Date: 20160526
  Serious: No
  Sender: FDA-Public Use
  Company Number: None

PATIENT
  Age: 56 Year
  Sex: Female

DRUGS (14)
  1. ESTRACE [Concomitant]
     Active Substance: ESTRADIOL
  2. CEFDINIR. [Concomitant]
     Active Substance: CEFDINIR
  3. TIZANIDINE. [Concomitant]
     Active Substance: TIZANIDINE
  4. RESTASIS [Concomitant]
     Active Substance: CYCLOSPORINE
  5. ENBREL [Concomitant]
     Active Substance: ETANERCEPT
  6. VIVELLE [Concomitant]
     Active Substance: ESTRADIOL
  7. METHOTREXATE 50 MG PER 2 ML SDV [Suspect]
     Active Substance: METHOTREXATE
     Indication: PSORIATIC ARTHROPATHY
     Route: 058
     Dates: start: 20120117, end: 201601
  8. HYDROCO/APAP [Concomitant]
     Active Substance: ACETAMINOPHEN\HYDROCODONE
  9. ALLEGRA [Concomitant]
     Active Substance: FEXOFENADINE HYDROCHLORIDE
  10. MELOXICAM. [Concomitant]
     Active Substance: MELOXICAM
  11. ZOLPIDEM [Concomitant]
     Active Substance: ZOLPIDEM\ZOLPIDEM TARTRATE
  12. METHADONE [Concomitant]
     Active Substance: METHADONE HYDROCHLORIDE
  13. LYRICA [Concomitant]
     Active Substance: PREGABALIN
  14. LEVOTHYROXINE. [Concomitant]
     Active Substance: LEVOTHYROXINE

REACTIONS (1)
  - Renal failure [None]

NARRATIVE: CASE EVENT DATE: 201601
